FAERS Safety Report 13370874 (Version 2)
Quarter: 2017Q2

REPORT INFORMATION
  Report Type: Spontaneous
  Country: None (occurrence: US)
  Receive Date: 20170324
  Receipt Date: 20170403
  Transmission Date: 20170830
  Serious: Yes (Other)
  Sender: FDA-Public Use
  Company Number: US-MERZ NORTH AMERICA, INC.-17MRZ-00089

PATIENT
  Age: 54 Year
  Sex: Female

DRUGS (1)
  1. XEOMIN [Suspect]
     Active Substance: INCOBOTULINUMTOXINA
     Indication: PRODUCT USED FOR UNKNOWN INDICATION
     Dates: start: 20170316

REACTIONS (12)
  - Hypoacusis [None]
  - Unresponsive to stimuli [None]
  - Vision blurred [None]
  - Influenza like illness [None]
  - Eye disorder [None]
  - Bedridden [None]
  - Drooling [None]
  - Drug ineffective [None]
  - Vertigo [None]
  - Tinnitus [None]
  - Dyspnoea [None]
  - Sinus disorder [None]
